FAERS Safety Report 7864651-4 (Version None)
Quarter: 2011Q4

REPORT INFORMATION
  Report Type: 
  Country: None (occurrence: None)
  Receive Date: 20111028
  Receipt Date: 20111017
  Transmission Date: 20120403
  Serious: Yes (Other)
  Sender: FDA-Public Use
  Company Number: US-AMGEN-USASP2011051239

PATIENT
  Age: 82 Year
  Sex: Male

DRUGS (5)
  1. NEULASTA [Suspect]
     Indication: CHEMOTHERAPY
     Dosage: 6 MG, UNK
     Route: 058
  2. FLUOROURACIL [Concomitant]
     Indication: COLON CANCER
  3. INFLUENZA VACCINE [Concomitant]
  4. LEUCOVORIN CALCIUM [Concomitant]
     Indication: COLON CANCER
  5. OXALIPLATIN [Concomitant]
     Indication: COLON CANCER

REACTIONS (1)
  - MYELITIS TRANSVERSE [None]
